FAERS Safety Report 21785496 (Version 2)
Quarter: 2023Q1

REPORT INFORMATION
  Report Type: Spontaneous
  Country: CZ (occurrence: CZ)
  Receive Date: 20221227
  Receipt Date: 20230105
  Transmission Date: 20230418
  Serious: Yes (Death, Hospitalization, Other)
  Sender: FDA-Public Use
  Company Number: CZ-GILEAD-2022-0610757

PATIENT
  Age: 76 Year
  Sex: Male

DRUGS (1)
  1. TECARTUS [Suspect]
     Active Substance: BREXUCABTAGENE AUTOLEUCEL
     Indication: Product used for unknown indication
     Route: 065

REACTIONS (5)
  - Cardiac death [Fatal]
  - Sepsis [Fatal]
  - Cytokine release syndrome [Unknown]
  - Neurotoxicity [Unknown]
  - Candida infection [Unknown]

NARRATIVE: CASE EVENT DATE: 20220101
